FAERS Safety Report 4645107-9 (Version None)
Quarter: 2005Q2

REPORT INFORMATION
  Report Type: 
  Country: None (occurrence: None)
  Receive Date: 20050422
  Receipt Date: 20050412
  Transmission Date: 20051028
  Serious: Yes (Other)
  Sender: FDA-Public Use
  Company Number: 2005060270

PATIENT
  Age: 12 Week
  Sex: Male
  Weight: 6.3504 kg

DRUGS (1)
  1. BENADRYL ALLERGY (DIPHENYDRAMINE) (DIPHENHYDRAMINE) [Suspect]
     Dosage: UNSPECIFIED AMOUNT, ORAL
     Route: 048

REACTIONS (1)
  - SOMNOLENCE [None]
